FAERS Safety Report 7219261-9 (Version None)
Quarter: 2011Q1

REPORT INFORMATION
  Report Type: 
  Country: None (occurrence: None)
  Receive Date: 20110111
  Receipt Date: 20110104
  Transmission Date: 20110831
  Serious: No
  Sender: FDA-Public Use
  Company Number: US-PFIZER INC-2011002123

PATIENT
  Sex: Female
  Weight: 40.8 kg

DRUGS (8)
  1. PROTONIX [Suspect]
     Indication: GASTROOESOPHAGEAL REFLUX DISEASE
     Dosage: 40 MG, UNK
     Dates: start: 20101220
  2. DIOVAN [Concomitant]
     Dosage: UNK
  3. NEORAL [Concomitant]
     Dosage: UNK
  4. PREDNISONE [Concomitant]
     Dosage: 1 MG, UNK
  5. MECLIZINE [Concomitant]
     Dosage: UNK
  6. ALLEGRA [Concomitant]
     Indication: HYPERSENSITIVITY
     Dosage: 180 MG, UNK
  7. NORVASC [Concomitant]
     Dosage: UNK
  8. CARAFATE [Concomitant]
     Dosage: UNK

REACTIONS (1)
  - HAEMOGLOBIN DECREASED [None]
